FAERS Safety Report 5982902-8 (Version None)
Quarter: 2008Q4

REPORT INFORMATION
  Report Type: 
  Country: None (occurrence: None)
  Receive Date: 20081208
  Receipt Date: 20081205
  Transmission Date: 20090506
  Serious: Yes (Other)
  Sender: FDA-Public Use
  Company Number: US-BRISTOL-MYERS SQUIBB COMPANY-14404487

PATIENT
  Age: 52 Year
  Sex: Male

DRUGS (4)
  1. ABATACEPT [Suspect]
     Dosage: INTERUPTED ON 24OCT08
     Route: 058
     Dates: start: 20080605
  2. DIOVAN HCT [Concomitant]
     Dates: start: 20080218
  3. NEXIUM [Concomitant]
     Dates: start: 20041120
  4. NAPROSYN [Concomitant]
     Dates: start: 20060909

REACTIONS (1)
  - PNEUMONITIS [None]
